FAERS Safety Report 15862291 (Version 1)
Quarter: 2018Q4

REPORT INFORMATION
  Report Type: Spontaneous
  Country: US (occurrence: US)
  Receive Date: 20181231
  Receipt Date: 20181231
  Transmission Date: 20190205
  Serious: Yes (Life-Threatening)
  Sender: FDA-Public Use
  Company Number: None

PATIENT
  Age: 24 Year
  Sex: Female
  Weight: 52.8 kg

DRUGS (2)
  1. MIRCERA [Suspect]
     Active Substance: METHOXY POLYETHYLENE GLYCOL-EPOETIN BETA
     Dosage: ?          OTHER DOSE:50MCG;OTHER FREQUENCY:EVERY 2 WEEKS;?
     Route: 042
     Dates: start: 20180501, end: 20180501
  2. VENOFER [Suspect]
     Active Substance: IRON SUCROSE
     Indication: IRON DEFICIENCY
     Dosage: ?          OTHER DOSE:100MG;?
     Route: 042
     Dates: start: 20180404, end: 20180501

REACTIONS (10)
  - Dizziness [None]
  - Urticaria [None]
  - Dyspnoea [None]
  - Feeling hot [None]
  - Vomiting [None]
  - Pruritus [None]
  - Palpitations [None]
  - Lip swelling [None]
  - Flushing [None]
  - Nausea [None]

NARRATIVE: CASE EVENT DATE: 20180501
